FAERS Safety Report 8395517-1 (Version None)
Quarter: 2012Q2

REPORT INFORMATION
  Report Type: 
  Country: None (occurrence: None)
  Receive Date: 20120530
  Receipt Date: 20110601
  Transmission Date: 20120825
  Serious: No
  Sender: FDA-Public Use
  Company Number: US-GLAXOSMITHKLINE-A0929889A

PATIENT
  Age: 81 Year
  Sex: Female

DRUGS (12)
  1. NAMENDA [Concomitant]
  2. VITAMIN C [Concomitant]
  3. SYMBICORT [Concomitant]
  4. CALCIUM SOLUTION [Concomitant]
     Route: 045
  5. TRIAMTERENE AND HYDROCHLOROTHIAZIDE [Concomitant]
  6. CALCIUM [Concomitant]
  7. ARIMIDEX [Concomitant]
  8. RADIATION TREATMENT [Concomitant]
  9. VENTOLIN [Suspect]
     Indication: CHRONIC OBSTRUCTIVE PULMONARY DISEASE
     Dosage: 2PUFF FOUR TIMES PER DAY
     Route: 055
     Dates: start: 20110501
  10. DILTIAZEM [Concomitant]
  11. ZOLOFT [Concomitant]
  12. LIPITOR [Concomitant]

REACTIONS (1)
  - DYSPHONIA [None]
